FAERS Safety Report 9527609 (Version 1)
Quarter: 2013Q1

REPORT INFORMATION
  Report Type: Spontaneous
  Country: US (occurrence: None)
  Receive Date: 20130314
  Receipt Date: 20130314
  Transmission Date: 20140127
  Serious: No
  Sender: FDA-Public Use
  Company Number: 1212USA002859

PATIENT
  Age: 59 Year
  Sex: Male

DRUGS (3)
  1. VICTRELIS [Suspect]
     Route: 048
     Dates: start: 20121018
  2. PEGINTRON [Suspect]
     Dates: start: 20121018
  3. RIBASPHERE [Suspect]
     Dates: start: 20121018

REACTIONS (2)
  - Fatigue [None]
  - Pain [None]
